FAERS Safety Report 16776085 (Version 2)
Quarter: 2019Q4

REPORT INFORMATION
  Report Type: Report from Study
  Country: US (occurrence: US)
  Receive Date: 20190905
  Receipt Date: 20191017
  Transmission Date: 20200122
  Serious: Yes (Hospitalization, Other)
  Sender: FDA-Public Use
  Company Number: PHEH2019US032695

PATIENT
  Age: 72 Year
  Sex: Male

DRUGS (1)
  1. ENTRESTO [Suspect]
     Active Substance: SACUBITRIL\VALSARTAN
     Indication: PRODUCT USED FOR UNKNOWN INDICATION
     Route: 048

REACTIONS (5)
  - Diabetes mellitus [Unknown]
  - Large intestinal haemorrhage [Unknown]
  - Myocardial infarction [Unknown]
  - Dyspnoea [Unknown]
  - Protein total decreased [Unknown]

NARRATIVE: CASE EVENT DATE: 20180427
